FAERS Safety Report 13396862 (Version 2)
Quarter: 2017Q2

REPORT INFORMATION
  Report Type: Report from Study
  Country: PL (occurrence: PL)
  Receive Date: 20170403
  Receipt Date: 20170406
  Transmission Date: 20170830
  Serious: Yes (Other)
  Sender: FDA-Public Use
  Company Number: PL-TEVA-755999ACC

PATIENT

DRUGS (1)
  1. TREANDA [Suspect]
     Active Substance: BENDAMUSTINE HYDROCHLORIDE
     Indication: CHRONIC LYMPHOCYTIC LEUKAEMIA RECURRENT
     Dosage: 70 MG/M2, CYCLIC (ON DAYS 1 AND 2 OF EACH CYCLE FOR UP TO 28 DAY CYCLE FOR SIX CYCLE)
     Route: 042

REACTIONS (1)
  - Autoimmune haemolytic anaemia [Unknown]
